FAERS Safety Report 24784806 (Version 2)
Quarter: 2025Q1

REPORT INFORMATION
  Report Type: Report from Study
  Country: US (occurrence: US)
  Receive Date: 20241228
  Receipt Date: 20250210
  Transmission Date: 20250408
  Serious: No
  Sender: CSL BEHRING
  Company Number: US-BEH-2024189568

PATIENT
  Sex: Male

DRUGS (1)
  1. VELPHORO [Suspect]
     Active Substance: SUCROFERRIC OXYHYDROXIDE
     Indication: Product used for unknown indication
     Route: 048
     Dates: end: 202402

REACTIONS (4)
  - End stage renal disease [Fatal]
  - Obesity [Fatal]
  - Disease complication [Fatal]
  - Therapy cessation [Unknown]

NARRATIVE: CASE EVENT DATE: 20240201
